FAERS Safety Report 24191642 (Version 3)
Quarter: 2024Q3

REPORT INFORMATION
  Report Type: Report from Study
  Country: ES (occurrence: ES)
  Receive Date: 20240808
  Receipt Date: 20240911
  Transmission Date: 20241017
  Serious: Yes (Other)
  Sender: ABBVIE
  Company Number: ES-ABBVIE-5869602

PATIENT
  Sex: Female
  Weight: 58 kg

DRUGS (2)
  1. CARBIDOPA\LEVODOPA [Suspect]
     Active Substance: CARBIDOPA\LEVODOPA
     Indication: Parkinson^s disease
     Route: 050
     Dates: start: 20170426, end: 202408
  2. CARBIDOPA\LEVODOPA [Suspect]
     Active Substance: CARBIDOPA\LEVODOPA
     Dosage: UPDATED DOSE
     Route: 050
     Dates: start: 202408

REACTIONS (7)
  - Sepsis [Recovered/Resolved with Sequelae]
  - Unevaluable event [Unknown]
  - Cognitive disorder [Unknown]
  - Apallic syndrome [Unknown]
  - Loss of personal independence in daily activities [Not Recovered/Not Resolved]
  - Enteral nutrition [Unknown]
  - Motor dysfunction [Unknown]

NARRATIVE: CASE EVENT DATE: 20210101
